FAERS Safety Report 10469405 (Version 1)
Quarter: 2014Q3

REPORT INFORMATION
  Report Type: Spontaneous
  Country: US (occurrence: None)
  Receive Date: 20140922
  Receipt Date: 20140922
  Transmission Date: 20150326
  Serious: Yes (Other)
  Sender: FDA-Public Use
  Company Number: None

PATIENT
  Age: 50 Year
  Sex: Female
  Weight: 50.8 kg

DRUGS (2)
  1. POWDERED ARTICHOKE [Suspect]
     Active Substance: ARTICHOKE
     Indication: BLOOD CHOLESTEROL INCREASED
     Dosage: 16-18 YEARS
  2. COQ10 [Suspect]
     Active Substance: UBIDECARENONE
     Indication: ATHEROSCLEROSIS PROPHYLAXIS
     Dosage: 16-18 YEARS ONCE DAILY

REACTIONS (4)
  - Gastritis [None]
  - Gastrointestinal mucosal disorder [None]
  - Epigastric discomfort [None]
  - Dyspepsia [None]
